FAERS Safety Report 10175458 (Version 2)
Quarter: 2014Q2

REPORT INFORMATION
  Report Type: Spontaneous
  Country: DE (occurrence: DE)
  Receive Date: 20140515
  Receipt Date: 20140515
  Transmission Date: 20141212
  Serious: Yes (Life-Threatening, Hospitalization)
  Sender: FDA-Public Use
  Company Number: DE-B.I. PHARMACEUTICALS,INC./RIDGEFIELD-2013-BI-41471DE

PATIENT
  Age: 78 Year
  Sex: Female
  Weight: 52 kg

DRUGS (11)
  1. PRADAXA [Suspect]
     Indication: ATRIAL FIBRILLATION
     Dosage: 220 MG
     Route: 065
  2. SIFROL [Suspect]
     Indication: PRODUCT USED FOR UNKNOWN INDICATION
     Dosage: 0.54 MG
     Route: 065
  3. SIFROL [Suspect]
     Dosage: 2.1 MG
     Route: 065
  4. MADOPAR 62,5 [Concomitant]
     Dosage: 4 ANZ
     Route: 065
  5. AZELECT [Concomitant]
     Route: 065
  6. EUTHYROX [Concomitant]
     Dosage: 50 MCG
     Route: 065
  7. LEVODOPA CARBID SAN 100/25 [Concomitant]
     Dosage: 1 ANZ
     Route: 065
  8. NACOM 100 RETARD [Concomitant]
     Dosage: 1 ANZ
     Route: 065
  9. OMEPRAZOL SANDOZ [Concomitant]
     Dosage: 1 ANZ
     Route: 065
  10. QUETIAPIN HEU [Concomitant]
     Dosage: 25 MG
     Route: 065
  11. TILIDIN-N SANDOZ 100/8 MG RETARD [Concomitant]
     Dosage: 1.5 MG
     Route: 065

REACTIONS (7)
  - Cerebral haemorrhage [Recovered/Resolved]
  - Confusional state [Unknown]
  - Listless [Unknown]
  - Nausea [Unknown]
  - Headache [Unknown]
  - Fall [Unknown]
  - Vomiting [Unknown]
